FAERS Safety Report 7532788-5 (Version None)
Quarter: 2011Q2

REPORT INFORMATION
  Report Type: 
  Country: None (occurrence: None)
  Receive Date: 20110608
  Receipt Date: 20110601
  Transmission Date: 20111010
  Serious: Yes (Hospitalization)
  Sender: FDA-Public Use
  Company Number: B0723703A

PATIENT
  Sex: Female

DRUGS (9)
  1. CALCIFEROL [Concomitant]
  2. LEVOTHYROXINE SODIUM [Concomitant]
  3. ASPIRIN [Concomitant]
  4. LANSOPRAZOLE [Concomitant]
  5. CALCIUM CARBONATE [Concomitant]
  6. REQUIP [Suspect]
     Dosage: 500MCG THREE TIMES PER DAY
     Route: 048
     Dates: start: 20110527
  7. SERTRALINE HYDROCHLORIDE [Concomitant]
  8. SOTALOL HCL [Concomitant]
  9. STALEVO 100 [Concomitant]

REACTIONS (2)
  - DEPRESSED MOOD [None]
  - WRIST FRACTURE [None]
